FAERS Safety Report 8594650-9 (Version None)
Quarter: 2012Q3

REPORT INFORMATION
  Report Type: 
  Country: None (occurrence: None)
  Receive Date: 20120815
  Receipt Date: 20120813
  Transmission Date: 20120928
  Serious: No
  Sender: FDA-Public Use
  Company Number: US-PFIZER INC-2012198155

PATIENT
  Age: 52 Year
  Sex: Female
  Weight: 74 kg

DRUGS (2)
  1. CHANTIX [Suspect]
     Indication: SMOKING CESSATION THERAPY
     Dosage: 0.5 MG, DAILY
     Route: 048
     Dates: start: 20030101
  2. CHANTIX [Suspect]
     Dosage: UNK
     Route: 048
     Dates: start: 20120801

REACTIONS (1)
  - ABNORMAL DREAMS [None]
